FAERS Safety Report 6619221-2 (Version None)
Quarter: 2010Q1

REPORT INFORMATION
  Report Type: 
  Country: None (occurrence: None)
  Receive Date: 20100302
  Receipt Date: 20100219
  Transmission Date: 20100710
  Serious: Yes (Other)
  Sender: FDA-Public Use
  Company Number: OPER20100035

PATIENT
  Age: 34 Year
  Sex: Female

DRUGS (1)
  1. OPANA [Suspect]
     Indication: BACK PAIN
     Dosage: 10 MG, Q12H, ORAL
     Route: 048

REACTIONS (1)
  - CONVULSION [None]
